FAERS Safety Report 9620869 (Version 1)
Quarter: 2013Q4

REPORT INFORMATION
  Report Type: Spontaneous
  Country: CA (occurrence: CA)
  Receive Date: 20131015
  Receipt Date: 20131015
  Transmission Date: 20140711
  Serious: Yes (Death)
  Sender: FDA-Public Use
  Company Number: PHHY2013CA111209

PATIENT
  Age: 27 Year
  Sex: Female

DRUGS (11)
  1. VALPROIC ACID [Suspect]
     Indication: STATUS EPILEPTICUS
  2. DEXAMETHASONE [Suspect]
     Indication: STATUS EPILEPTICUS
  3. TOPIRAMATE [Suspect]
     Indication: STATUS EPILEPTICUS
  4. MAGNESIUM SULFATE [Suspect]
     Indication: STATUS EPILEPTICUS
  5. KETAMINE [Suspect]
     Indication: STATUS EPILEPTICUS
  6. LACOSAMIDE [Suspect]
     Indication: STATUS EPILEPTICUS
  7. PENTOBARBITAL [Suspect]
     Indication: STATUS EPILEPTICUS
  8. ISOFLURANE [Suspect]
     Indication: STATUS EPILEPTICUS
  9. LEVETIRACETAM [Concomitant]
     Indication: STATUS EPILEPTICUS
  10. CLOBAZAM [Concomitant]
     Indication: STATUS EPILEPTICUS
  11. MIDAZOLAM [Concomitant]
     Indication: STATUS EPILEPTICUS
     Dosage: 100 MG/H

REACTIONS (2)
  - Death [Fatal]
  - Drug ineffective [Unknown]
